FAERS Safety Report 6255175-9 (Version None)
Quarter: 2009Q3

REPORT INFORMATION
  Report Type: 
  Country: None (occurrence: None)
  Receive Date: 20090702
  Receipt Date: 20090629
  Transmission Date: 20100115
  Serious: Yes (Death, Other)
  Sender: FDA-Public Use
  Company Number: PHHY2009IL26232

PATIENT
  Age: 20 Year
  Sex: Female

DRUGS (6)
  1. CYCLOSPORINE [Suspect]
     Indication: STEM CELL TRANSPLANT
  2. ANTI-THYMOCYTE GLOBULIN NOS [Concomitant]
  3. FLUDARABINE PHOSPHATE [Concomitant]
  4. CYCLOPHOSPHAMIDE [Concomitant]
  5. ACYCLOVIR [Concomitant]
  6. CO-TRIMOXAZOLE [Concomitant]

REACTIONS (30)
  - AMYLOIDOSIS [None]
  - BACTERIAL INFECTION [None]
  - BLOOD CREATININE INCREASED [None]
  - BRONCHOPULMONARY ASPERGILLOSIS [None]
  - CHOLESTASIS [None]
  - CYTOMEGALOVIRUS INFECTION [None]
  - DIARRHOEA HAEMORRHAGIC [None]
  - ESCHERICHIA INFECTION [None]
  - FLUID OVERLOAD [None]
  - GRAFT VERSUS HOST DISEASE [None]
  - HEPATITIS C [None]
  - HEPATITIS C VIRUS TEST [None]
  - HYPOALBUMINAEMIA [None]
  - HYPOTENSION [None]
  - JAUNDICE [None]
  - KLEBSIELLA INFECTION [None]
  - MINERAL METABOLISM DISORDER [None]
  - NEPHROPATHY TOXIC [None]
  - NEPHROTIC SYNDROME [None]
  - OLIGURIA [None]
  - PAIN IN EXTREMITY [None]
  - PANCYTOPENIA [None]
  - PROTEINURIA [None]
  - PYREXIA [None]
  - RASH [None]
  - RENAL IMPAIRMENT [None]
  - RENAL TUBULAR NECROSIS [None]
  - SEPSIS [None]
  - SKIN INFECTION [None]
  - SOFT TISSUE INFECTION [None]
